FAERS Safety Report 9391847 (Version 2)
Quarter: 2013Q3

REPORT INFORMATION
  Report Type: Spontaneous
  Country: JP (occurrence: JP)
  Receive Date: 20130709
  Receipt Date: 20130717
  Transmission Date: 20140515
  Serious: Yes (Other)
  Sender: FDA-Public Use
  Company Number: JP-OTSUKA-JP-2013-12480

PATIENT
  Age: 75 Year
  Sex: Male

DRUGS (2)
  1. PLETAAL [Suspect]
     Dosage: UNK
     Route: 048
  2. CLOPIDOGREL SULFATE [Concomitant]
     Dosage: UNK
     Route: 048

REACTIONS (7)
  - Cholecystitis [Unknown]
  - Shock [Unknown]
  - Hepatic enzyme increased [Unknown]
  - Vascular pseudoaneurysm [Unknown]
  - Haemobilia [Unknown]
  - Anaemia [Unknown]
  - Jaundice [Unknown]
